FAERS Safety Report 19936951 (Version 2)
Quarter: 2021Q4

REPORT INFORMATION
  Report Type: Report from Study
  Country: HN (occurrence: HN)
  Receive Date: 20211009
  Receipt Date: 20211126
  Transmission Date: 20220303
  Serious: No
  Sender: FDA-Public Use
  Company Number: HN-NOVARTISPH-NVSC2021HN230148

PATIENT
  Sex: Male
  Weight: 75.283 kg

DRUGS (4)
  1. SACUBITRIL\VALSARTAN [Suspect]
     Active Substance: SACUBITRIL\VALSARTAN
     Indication: Cardiac disorder
     Dosage: 1 DF (100 MG, STARTED APPROXIMATELY 5 YEARS AGO)
     Route: 065
  2. SACUBITRIL\VALSARTAN [Suspect]
     Active Substance: SACUBITRIL\VALSARTAN
     Dosage: 2 DF (200 MG, STARTED APPROXIMATELY 1 YEAR AGO)
     Route: 065
  3. SACUBITRIL\VALSARTAN [Suspect]
     Active Substance: SACUBITRIL\VALSARTAN
     Dosage: 0.5 DF, QD (HALF OF 200MG, STARTED 10 MONTHS AGO APPROXIMATELY)
     Route: 065
  4. XARELTO [Concomitant]
     Active Substance: RIVAROXABAN
     Indication: Infarction
     Dosage: 20 MG, QD (START DATE: 6 YEARS AGO)
     Route: 065

REACTIONS (5)
  - Bronchitis [Recovering/Resolving]
  - Cough [Recovering/Resolving]
  - Chest discomfort [Recovering/Resolving]
  - Product use in unapproved indication [Unknown]
  - Wrong technique in product usage process [Unknown]
